FAERS Safety Report 15074798 (Version 1)
Quarter: 2018Q2

REPORT INFORMATION
  Report Type: Spontaneous
  Country: US (occurrence: US)
  Receive Date: 20180627
  Receipt Date: 20180627
  Transmission Date: 20180711
  Serious: Yes (Hospitalization, Other)
  Sender: FDA-Public Use
  Company Number: US-SAOL THERAPEUTICS-2017SAO01308

PATIENT
  Age: 16 Year
  Sex: Male
  Weight: 36.1 kg

DRUGS (14)
  1. DESMOPRESSIN [Concomitant]
     Active Substance: DESMOPRESSIN
  2. NAPROXEN. [Concomitant]
     Active Substance: NAPROXEN
  3. CHOLECALCIFEROL [Concomitant]
     Active Substance: CHOLECALCIFEROL
  4. POTASSIUM SODIUM PHOSPHATE [Concomitant]
  5. LIORESAL [Suspect]
     Active Substance: BACLOFEN
     Indication: QUADRIPLEGIA
  6. JEVITY [Concomitant]
     Active Substance: DIETARY SUPPLEMENT
  7. LIORESAL [Suspect]
     Active Substance: BACLOFEN
     Indication: CEREBRAL PALSY
     Dosage: 1400 ?G, \DAY
     Route: 037
  8. TYLENOL [Concomitant]
     Active Substance: ACETAMINOPHEN
  9. LIORESAL [Suspect]
     Active Substance: BACLOFEN
     Indication: MUSCLE SPASTICITY
     Dosage: 1400.9 ?G, \DAY
     Route: 037
     Dates: start: 201105
  10. FLONASE [Concomitant]
     Active Substance: FLUTICASONE PROPIONATE
  11. RANITIDINE. [Concomitant]
     Active Substance: RANITIDINE
  12. DICLOFENAC [Concomitant]
     Active Substance: DICLOFENAC
  13. CALCIUM CARBONATE. [Concomitant]
     Active Substance: CALCIUM CARBONATE
  14. MIRALAX [Concomitant]
     Active Substance: POLYETHYLENE GLYCOL 3350

REACTIONS (2)
  - Drug withdrawal syndrome [Unknown]
  - Device battery issue [Unknown]

NARRATIVE: CASE EVENT DATE: 20170804
